FAERS Safety Report 17484958 (Version 3)
Quarter: 2021Q2

REPORT INFORMATION
  Report Type: Report from Study
  Country: CA (occurrence: CA)
  Receive Date: 20200302
  Receipt Date: 20210608
  Transmission Date: 20210716
  Serious: Yes (Other)
  Sender: FDA-Public Use
  Company Number: CA-JNJFOC-20200114193

PATIENT
  Age: 40 Year
  Sex: Male
  Weight: 68.49 kg

DRUGS (2)
  1. REMICADE [Suspect]
     Active Substance: INFLIXIMAB
     Indication: CROHN^S DISEASE
     Route: 042
  2. REMICADE [Suspect]
     Active Substance: INFLIXIMAB
     Dosage: 5MG/KG
     Route: 042
     Dates: start: 20210602

REACTIONS (3)
  - Hernia [Unknown]
  - Procedural pain [Unknown]
  - Orchidectomy [Recovering/Resolving]

NARRATIVE: CASE EVENT DATE: 202002
